FAERS Safety Report 4386150-7 (Version None)
Quarter: 2004Q2

REPORT INFORMATION
  Report Type: 
  Country: None (occurrence: None)
  Receive Date: 20040622
  Receipt Date: 20040611
  Transmission Date: 20050107
  Serious: Yes (Hospitalization, Other)
  Sender: FDA-Public Use
  Company Number: 2004039393

PATIENT
  Age: 75 Year
  Sex: Male

DRUGS (9)
  1. TIKOSYN [Suspect]
     Indication: CARDIAC DISORDER
     Dosage: 500 MCG (250 MCG, 2 IN 1 D) , ORAL
     Route: 048
     Dates: start: 20000101
  2. WARFARIN SODIUM [Suspect]
     Indication: ILL-DEFINED DISORDER
     Dosage: ORAL
     Route: 048
  3. FLUOXETINE HYDROCHLORIDE [Concomitant]
  4. OBETROL (AMFETAMINE ASPARTATE, AMFETAMINE SULFATE, DEXAMFETAMINE SACCH [Concomitant]
  5. SERTRALINE HYDROCHLORIDE [Concomitant]
  6. DIPHENHYDRAMINE HCL [Concomitant]
  7. LISINOPRIL [Concomitant]
  8. FUROSEMIDE [Concomitant]
  9. GLIMEPIRIDE [Concomitant]

REACTIONS (9)
  - ANAEMIA [None]
  - ARRHYTHMIA [None]
  - CHRONIC OBSTRUCTIVE AIRWAYS DISEASE [None]
  - DRUG INEFFECTIVE [None]
  - GAIT DISTURBANCE [None]
  - GENERAL PHYSICAL CONDITION ABNORMAL [None]
  - HAEMORRHAGE [None]
  - HIATUS HERNIA [None]
  - WEIGHT DECREASED [None]
